FAERS Safety Report 7706633-9 (Version None)
Quarter: 2011Q3

REPORT INFORMATION
  Report Type: 
  Country: None (occurrence: None)
  Receive Date: 20110824
  Receipt Date: 20110815
  Transmission Date: 20111222
  Serious: Yes (Hospitalization)
  Sender: FDA-Public Use
  Company Number: US-JNJFOC-20110406314

PATIENT
  Sex: Male

DRUGS (25)
  1. ABIRATERONE ACETATE [Suspect]
     Indication: PROSTATE CANCER METASTATIC
     Route: 048
     Dates: start: 20101029, end: 20110411
  2. PREDNISONE [Suspect]
     Route: 048
     Dates: start: 20080818
  3. EPIVIR-HBV [Concomitant]
     Indication: HEPATITIS B
     Route: 048
     Dates: start: 20051227
  4. LEUPROLIDE ACETATE [Concomitant]
     Indication: HORMONE THERAPY
     Route: 030
     Dates: start: 20040213
  5. LEUPROLIDE ACETATE [Concomitant]
     Route: 030
     Dates: start: 20080818
  6. ABIRATERONE ACETATE [Suspect]
     Route: 048
  7. VITAMIN D [Concomitant]
     Indication: GENERAL PHYSICAL CONDITION
     Route: 048
     Dates: start: 20050510
  8. PREDNISONE [Suspect]
     Indication: PROSTATE CANCER METASTATIC
     Route: 048
     Dates: start: 20101029
  9. ACETAMINOPHEN [Concomitant]
     Indication: PELVIC PAIN
     Route: 048
     Dates: start: 20080811
  10. GABAPENTIN [Concomitant]
     Indication: CANCER PAIN
     Route: 048
     Dates: start: 20101223
  11. ACETAMINOPHEN [Concomitant]
     Indication: BACK PAIN
     Route: 048
     Dates: start: 20080811
  12. ESCITALOPRAM [Concomitant]
     Indication: ANXIETY
     Route: 048
     Dates: start: 20050510
  13. TRAMADOL HCL [Concomitant]
     Indication: CANCER PAIN
     Route: 048
     Dates: start: 20101001
  14. GABAPENTIN [Concomitant]
     Route: 048
     Dates: start: 20100903, end: 20101223
  15. MILK OF MAGNESIA TAB [Concomitant]
     Indication: ABDOMINAL PAIN
     Route: 048
     Dates: start: 20110401
  16. CALCIUM CARBONATE [Concomitant]
     Indication: GENERAL PHYSICAL CONDITION
     Route: 048
     Dates: start: 20050510
  17. HYDROCODONE BITARTRATE AND ACETAMINOPHEN [Concomitant]
     Indication: CANCER PAIN
     Route: 048
     Dates: start: 20090401
  18. ENOXAPARIN SODIUM [Concomitant]
     Indication: PULMONARY EMBOLISM
     Dosage: 100 MG/ML SUBCUTANEOUS SOLUTION
     Route: 058
     Dates: start: 20101015
  19. ESCITALOPRAM [Concomitant]
     Indication: DEPRESSION
     Route: 048
     Dates: start: 20050510
  20. LEUPROLIDE ACETATE [Concomitant]
     Route: 030
     Dates: start: 20040213
  21. ASCORBIC ACID [Concomitant]
     Indication: GENERAL PHYSICAL CONDITION
     Route: 048
     Dates: start: 20070410
  22. FISH OIL [Concomitant]
     Indication: GENERAL PHYSICAL CONDITION
     Route: 048
     Dates: start: 20080304
  23. LEUPROLIDE ACETATE [Concomitant]
     Indication: PROSTATE CANCER
     Route: 030
     Dates: start: 20080818
  24. MULTI-VITAMINS [Concomitant]
     Indication: GENERAL PHYSICAL CONDITION
     Route: 048
     Dates: start: 20061128
  25. AUGMENTIN '125' [Concomitant]
     Indication: PROPHYLAXIS
     Route: 048
     Dates: start: 20110301

REACTIONS (1)
  - SEPSIS [None]
